FAERS Safety Report 20278027 (Version 1)
Quarter: 2022Q1

REPORT INFORMATION
  Report Type: Spontaneous
  Country: TW (occurrence: TW)
  Receive Date: 20220103
  Receipt Date: 20220103
  Transmission Date: 20220423
  Serious: Yes (Other)
  Sender: FDA-Public Use
  Company Number: TW-ROCHE-2986341

PATIENT
  Age: 68 Year
  Sex: Female

DRUGS (1)
  1. ERLOTINIB [Suspect]
     Active Substance: ERLOTINIB
     Indication: Lung adenocarcinoma
     Route: 048

REACTIONS (5)
  - Purpura [Recovered/Resolved]
  - Rash pustular [Recovered/Resolved]
  - Staphylococcal infection [Unknown]
  - Xerosis [Unknown]
  - Diarrhoea [Unknown]
